FAERS Safety Report 14513883 (Version 2)
Quarter: 2018Q1

REPORT INFORMATION
  Report Type: Report from Study
  Country: DE (occurrence: DE)
  Receive Date: 20180209
  Receipt Date: 20180318
  Transmission Date: 20180509
  Serious: Yes (Other)
  Sender: FDA-Public Use
  Company Number: PHHY2017DE007763

PATIENT
  Sex: Female
  Weight: 90 kg

DRUGS (16)
  1. COSENTYX [Suspect]
     Active Substance: SECUKINUMAB
     Dosage: 300 MG (PER APPLICATION)
     Route: 065
     Dates: start: 20160521
  2. COSENTYX [Suspect]
     Active Substance: SECUKINUMAB
     Dosage: 300 MG (PER APPLICATION)
     Route: 065
     Dates: start: 20160430
  3. COSENTYX [Suspect]
     Active Substance: SECUKINUMAB
     Dosage: 300 MG (PER APPLICATION)
     Route: 065
     Dates: start: 20160507
  4. COSENTYX [Suspect]
     Active Substance: SECUKINUMAB
     Dosage: 300 MG (PER APPLICATION)
     Route: 065
     Dates: start: 20160716
  5. COSENTYX [Suspect]
     Active Substance: SECUKINUMAB
     Dosage: 300 MG (PER APPLICATION)
     Route: 065
     Dates: start: 20160813
  6. RUBIEFOL [Concomitant]
     Indication: PRODUCT USED FOR UNKNOWN INDICATION
     Dosage: 10 MG, QW
     Route: 048
     Dates: start: 20131105
  7. AROXICAM [Concomitant]
     Indication: RHEUMATIC DISORDER
     Dosage: 90 MG, QD
     Route: 048
     Dates: start: 20161006
  8. COSENTYX [Suspect]
     Active Substance: SECUKINUMAB
     Dosage: 300 MG (PER APPLICATION)
     Route: 065
     Dates: start: 20170117
  9. COSENTYX [Suspect]
     Active Substance: SECUKINUMAB
     Indication: PSORIATIC ARTHROPATHY
     Dosage: 300 MG (PER APPLICATION)
     Route: 065
     Dates: start: 20160422
  10. COSENTYX [Suspect]
     Active Substance: SECUKINUMAB
     Dosage: 300 MG (PER APPLICATION)
     Route: 065
     Dates: start: 20161117
  11. COSENTYX [Suspect]
     Active Substance: SECUKINUMAB
     Dosage: 300 MG (PER APPLICATION)
     Route: 065
     Dates: start: 20160917
  12. COSENTYX [Suspect]
     Active Substance: SECUKINUMAB
     Dosage: 300 MG (PER APPLICATION)
     Route: 065
     Dates: start: 20161017
  13. COSENTYX [Suspect]
     Active Substance: SECUKINUMAB
     Dosage: 300 MG (PER APPLICATION)
     Route: 065
     Dates: start: 20160514
  14. COSENTYX [Suspect]
     Active Substance: SECUKINUMAB
     Dosage: 300 MG (PER APPLICATION)
     Route: 065
     Dates: start: 20160618
  15. COSENTYX [Suspect]
     Active Substance: SECUKINUMAB
     Dosage: 300 MG (PER APPLICATION)
     Route: 065
     Dates: start: 20161217
  16. PREDNISOLONE. [Concomitant]
     Active Substance: PREDNISOLONE
     Indication: PSORIATIC ARTHROPATHY
     Route: 048
     Dates: start: 20131105

REACTIONS (2)
  - Rheumatoid arthritis [Not Recovered/Not Resolved]
  - Sleep disorder [Not Recovered/Not Resolved]

NARRATIVE: CASE EVENT DATE: 20160526
